FAERS Safety Report 5949436-8 (Version None)
Quarter: 2008Q4

REPORT INFORMATION
  Report Type: 
  Country: None (occurrence: None)
  Receive Date: 20081112
  Receipt Date: 20081103
  Transmission Date: 20090506
  Serious: Yes (Other)
  Sender: FDA-Public Use
  Company Number: PHBS2008IT06204

PATIENT
  Age: 44 Year
  Sex: Male

DRUGS (5)
  1. CYCLOSPORINE [Suspect]
     Indication: LIVER TRANSPLANT
     Dosage: 100 + 100 MG
     Route: 065
  2. MYCOPHENOLATE MOFETIL [Suspect]
     Indication: LIVER TRANSPLANT
     Dosage: 500 MG X 3
     Route: 065
  3. STEROIDS NOS [Suspect]
     Indication: LIVER TRANSPLANT
     Dosage: 20 MG
     Route: 065
  4. ATAZANAVIR SULFATE [Concomitant]
  5. ABACAVIR [Concomitant]

REACTIONS (9)
  - BLOOD HIV RNA INCREASED [None]
  - CARDIAC ENZYMES INCREASED [None]
  - DISEASE RECURRENCE [None]
  - ESCHERICHIA INFECTION [None]
  - HEPATIC FUNCTION ABNORMAL [None]
  - HEPATITIS C VIRUS TEST [None]
  - LUNG INFECTION [None]
  - MYOCARDIAL INFARCTION [None]
  - TRANSPLANT REJECTION [None]
